FAERS Safety Report 7997483-7 (Version None)
Quarter: 2011Q4

REPORT INFORMATION
  Report Type: 
  Country: None (occurrence: None)
  Receive Date: 20111221
  Receipt Date: 20111221
  Transmission Date: 20120403
  Serious: Yes (Other)
  Sender: FDA-Public Use
  Company Number: None

PATIENT
  Age: 69 Year
  Sex: Female
  Weight: 88.904 kg

DRUGS (1)
  1. CLIMARA [Suspect]
     Indication: HYSTERECTOMY
     Dosage: 1 PATCH
     Route: 062
     Dates: start: 20000101, end: 20111001

REACTIONS (4)
  - PRODUCT SUBSTITUTION ISSUE [None]
  - HOT FLUSH [None]
  - PRODUCT QUALITY ISSUE [None]
  - DRUG INEFFECTIVE [None]
